FAERS Safety Report 4304227-9 (Version None)
Quarter: 2004Q1

REPORT INFORMATION
  Report Type: 
  Country: None (occurrence: None)
  Receive Date: 20040225
  Receipt Date: 20031210
  Transmission Date: 20041129
  Serious: Yes (Other)
  Sender: FDA-Public Use
  Company Number: WAES 0312GBR00124

PATIENT
  Age: 77 Year
  Sex: Male

DRUGS (5)
  1. GLYBURIDE [Concomitant]
     Indication: DIABETES MELLITUS
     Dates: start: 20020114
  2. METFORMIN [Concomitant]
     Indication: DIABETES MELLITUS
     Dates: start: 20020114
  3. QUININE [Concomitant]
     Indication: MUSCLE CRAMP
     Dates: start: 20011214
  4. ZOCOR [Suspect]
     Indication: BLOOD CHOLESTEROL INCREASED
     Route: 048
     Dates: start: 20030401
  5. TAMSULOSIN HYDROCHLORIDE [Concomitant]
     Dates: start: 20011217

REACTIONS (2)
  - AMNESIA [None]
  - DEAFNESS [None]
